FAERS Safety Report 9676460 (Version 2)
Quarter: 2014Q1

REPORT INFORMATION
  Report Type: Spontaneous
  Country: US (occurrence: US)
  Receive Date: 20131107
  Receipt Date: 20140103
  Transmission Date: 20141002
  Serious: No
  Sender: FDA-Public Use
  Company Number: US-PFIZER INC-2013314634

PATIENT
  Age: 45 Year
  Sex: Male

DRUGS (12)
  1. BOSULIF [Suspect]
     Indication: CHRONIC MYELOID LEUKAEMIA
     Dosage: 500 MG, 1X/DAY
     Route: 048
     Dates: start: 20131024, end: 2013
  2. BOSULIF [Suspect]
     Dosage: 500 MG, 1X/DAY
     Dates: start: 201312
  3. AMLODIPINE [Concomitant]
     Dosage: 10 MG, 2X/DAY
     Route: 048
  4. HYDROCHLOROTHIAZIDE [Concomitant]
     Dosage: 25 MG, 1X/DAY X 30 DAYS
     Route: 048
  5. LOPID [Concomitant]
     Dosage: 600 MG, 2X/DAY
     Route: 048
  6. METOPROLOL [Concomitant]
     Dosage: 50 MG, 1X/DAY
     Route: 048
  7. COMPAZINE [Concomitant]
     Dosage: UNK
     Route: 048
  8. PROCHLORPERAZINE [Concomitant]
     Indication: NAUSEA
     Dosage: 10 MG, EVERY 6 HOURS AS NEEDED
     Route: 048
  9. PROCHLORPERAZINE [Concomitant]
     Indication: VOMITING
  10. INDOMETHACIN [Concomitant]
     Indication: PAIN
     Dosage: 25 MG, 3 TIMES A DAY AS NEEDED
     Route: 048
  11. TRAMADOL [Concomitant]
     Indication: BREAKTHROUGH PAIN
     Dosage: 50 MG, EVERY 4 HOURS AS NEEDED
     Route: 048
  12. IMATINIB [Concomitant]
     Dosage: 400 MG, 2X/DAY

REACTIONS (8)
  - Vomiting [Recovering/Resolving]
  - Diarrhoea [Recovering/Resolving]
  - Nausea [Recovering/Resolving]
  - Decreased appetite [Recovering/Resolving]
  - Musculoskeletal pain [Unknown]
  - Rash pruritic [Unknown]
  - Musculoskeletal chest pain [Unknown]
  - Spleen disorder [Unknown]
